FAERS Safety Report 19316670 (Version 2)
Quarter: 2021Q2

REPORT INFORMATION
  Report Type: Spontaneous
  Country: BG (occurrence: BG)
  Receive Date: 20210527
  Receipt Date: 20210602
  Transmission Date: 20210717
  Serious: Yes (Hospitalization, Other)
  Sender: FDA-Public Use
  Company Number: BG-ELI_LILLY_AND_COMPANY-BG202105006597

PATIENT
  Age: 42 Year
  Sex: Female

DRUGS (5)
  1. VERZENIOS [Suspect]
     Active Substance: ABEMACICLIB
     Indication: PRODUCT USED FOR UNKNOWN INDICATION
  2. FULVESTRANT. [Concomitant]
     Active Substance: FULVESTRANT
     Indication: PRODUCT USED FOR UNKNOWN INDICATION
     Route: 065
  3. XGEVA [Concomitant]
     Active Substance: DENOSUMAB
     Indication: PRODUCT USED FOR UNKNOWN INDICATION
     Route: 065
  4. VERZENIOS [Suspect]
     Active Substance: ABEMACICLIB
     Dosage: 100 MG, BID
     Route: 065
  5. ZOLADEX [Concomitant]
     Active Substance: GOSERELIN ACETATE
     Indication: PRODUCT USED FOR UNKNOWN INDICATION
     Route: 065

REACTIONS (5)
  - Thrombocytopenia [Recovering/Resolving]
  - Neutropenia [Recovering/Resolving]
  - Anaemia [Recovering/Resolving]
  - COVID-19 [Unknown]
  - Pneumonitis [Unknown]
